FAERS Safety Report 9317262 (Version 1)
Quarter: 2013Q2

REPORT INFORMATION
  Report Type: Spontaneous
  Country: US (occurrence: US)
  Receive Date: 20130530
  Receipt Date: 20130530
  Transmission Date: 20140414
  Serious: No
  Sender: FDA-Public Use
  Company Number: US-NOVEN-12US005126

PATIENT
  Age: 6 Year
  Sex: Male

DRUGS (3)
  1. DAYTRANA [Suspect]
     Indication: ATTENTION DEFICIT/HYPERACTIVITY DISORDER
     Dosage: 5 MG
     Route: 062
     Dates: start: 201012, end: 2012
  2. DAYTRANA [Suspect]
     Dosage: 10 MG, UNK
  3. DAYTRANA [Suspect]
     Dosage: 30 MG, UNK

REACTIONS (14)
  - Emotional disorder [Recovered/Resolved]
  - Negative thoughts [Recovered/Resolved]
  - Homicidal ideation [Recovered/Resolved]
  - Pallor [Recovered/Resolved]
  - Fear [Recovered/Resolved]
  - Pain in extremity [None]
  - Chest pain [Recovered/Resolved]
  - Muscular weakness [Recovered/Resolved]
  - Muscle spasms [None]
  - Tic [Unknown]
  - Aggression [Recovered/Resolved]
  - Wrong technique in drug usage process [Recovered/Resolved]
  - Overdose [Not Recovered/Not Resolved]
  - Drug prescribing error [Not Recovered/Not Resolved]
